FAERS Safety Report 19810400 (Version 1)
Quarter: 2021Q3

REPORT INFORMATION
  Report Type: Other
  Country: ES (occurrence: ES)
  Receive Date: 20210909
  Receipt Date: 20210909
  Transmission Date: 20211014
  Serious: Yes (Life-Threatening, Other)
  Sender: FDA-Public Use
  Company Number: ES-ZHEJIANG YONGTAI PHARMACEUTICALS CO..,LTD.-2118179

PATIENT
  Age: 53 Year
  Sex: Female

DRUGS (2)
  1. CLADRIBINE. [Interacting]
     Active Substance: CLADRIBINE
     Route: 065
     Dates: start: 201912
  2. GABAPENTIN. [Suspect]
     Active Substance: GABAPENTIN
     Indication: NEURALGIA
     Route: 065

REACTIONS (4)
  - Leukopenia [Unknown]
  - Neutropenia [Recovered/Resolved]
  - Drug interaction [Unknown]
  - Lymphopenia [Unknown]
